FAERS Safety Report 9741460 (Version 3)
Quarter: 2013Q4

REPORT INFORMATION
  Report Type: Spontaneous
  Country: US (occurrence: US)
  Receive Date: 20131209
  Receipt Date: 20131219
  Transmission Date: 20140711
  Serious: Yes (Death, Other)
  Sender: FDA-Public Use
  Company Number: PHEH2013US025339

PATIENT
  Age: 54 Year
  Sex: Female
  Weight: 104.31 kg

DRUGS (8)
  1. GILENYA [Suspect]
     Dosage: 1 DF, QD
     Route: 048
     Dates: start: 201309
  2. PROCARDIA [Concomitant]
  3. LASIX [Concomitant]
  4. PRILOSEC [Concomitant]
  5. AMPYRA [Concomitant]
  6. BACLOFEN [Concomitant]
  7. ZOLOFT [Concomitant]
  8. TOPAMAX [Concomitant]

REACTIONS (15)
  - Cardio-respiratory arrest [Fatal]
  - Dyspnoea [Fatal]
  - Asthenia [Fatal]
  - Respiratory distress [Fatal]
  - Loss of consciousness [Fatal]
  - Apnoea [Fatal]
  - Pulse absent [Fatal]
  - Cyanosis [Unknown]
  - Respiratory rate increased [Recovering/Resolving]
  - Blood glucose increased [Unknown]
  - Heart rate increased [Unknown]
  - Wheezing [Unknown]
  - Breath sounds abnormal [Unknown]
  - Mucous membrane disorder [Unknown]
  - Malaise [Unknown]
